FAERS Safety Report 26208940 (Version 1)
Quarter: 2025Q4

REPORT INFORMATION
  Report Type: Spontaneous
  Country: CH (occurrence: CH)
  Receive Date: 20251229
  Receipt Date: 20251229
  Transmission Date: 20260118
  Serious: Yes (Hospitalization, Other)
  Sender: SANDOZ
  Company Number: None

PATIENT
  Age: 70 Year
  Sex: Male
  Weight: 71 kg

DRUGS (11)
  1. OLANZAPINE [Suspect]
     Active Substance: OLANZAPINE
     Indication: Bipolar disorder
     Dosage: 20 MG
  2. TRAZODONE HYDROCHLORIDE [Suspect]
     Active Substance: TRAZODONE HYDROCHLORIDE
     Indication: Depression
     Dosage: 75 MG
  3. LITHIUM [Suspect]
     Active Substance: LITHIUM
     Indication: Product used for unknown indication
     Dosage: 2-0-1, LITHII CARBONAS 450 MG CORRESP. LITHIUM 12,2 MMOL
     Dates: end: 20251012
  4. HERBALS\HOPS\VALERIAN [Concomitant]
     Active Substance: HERBALS\HOPS\VALERIAN
     Indication: Product used for unknown indication
     Dosage: UNK
  5. VALVERDE ENTSPANNUNGS [Concomitant]
     Indication: Product used for unknown indication
     Dosage: UNK
  6. HALDOL [Concomitant]
     Active Substance: HALOPERIDOL
     Indication: Product used for unknown indication
     Dosage: UNK
  7. LAVENDER OIL [Concomitant]
     Active Substance: LAVENDER OIL
     Indication: Product used for unknown indication
     Dosage: UNK
  8. CHOLECALCIFEROL [Concomitant]
     Active Substance: CHOLECALCIFEROL
     Indication: Product used for unknown indication
     Dosage: UNK
  9. INDERAL [Concomitant]
     Active Substance: PROPRANOLOL HYDROCHLORIDE
     Indication: Product used for unknown indication
     Dosage: 20 MG
  10. TAMSULOSIN [Concomitant]
     Active Substance: TAMSULOSIN
     Indication: Product used for unknown indication
     Dosage: 0.4 MG
  11. Dafalgan direct [Concomitant]
     Indication: Product used for unknown indication
     Dosage: UNK

REACTIONS (6)
  - Serotonin syndrome [Recovering/Resolving]
  - Toxicity to various agents [Recovering/Resolving]
  - Psychomotor hyperactivity [Recovering/Resolving]
  - Drug interaction [Recovering/Resolving]
  - Tremor [Recovering/Resolving]
  - Dysarthria [Recovering/Resolving]

NARRATIVE: CASE EVENT DATE: 20251012
